FAERS Safety Report 12866445 (Version 1)
Quarter: 2016Q4

REPORT INFORMATION
  Report Type: Spontaneous
  Country: US (occurrence: US)
  Receive Date: 20161020
  Receipt Date: 20161020
  Transmission Date: 20170207
  Serious: Yes (Other)
  Sender: FDA-Public Use
  Company Number: US-SA-2016SA105836

PATIENT
  Age: 36 Year
  Sex: Female

DRUGS (14)
  1. PAROXETINE. [Concomitant]
     Active Substance: PAROXETINE
  2. COLLAGENASE SANTYL [Concomitant]
     Active Substance: COLLAGENASE CLOSTRIDIUM HISTOLYTICUM
  3. BACLOFEN. [Concomitant]
     Active Substance: BACLOFEN
  4. GABAPENTIN. [Concomitant]
     Active Substance: GABAPENTIN
  5. MIRTAZAPINE. [Concomitant]
     Active Substance: MIRTAZAPINE
  6. AUBAGIO [Suspect]
     Active Substance: TERIFLUNOMIDE
     Indication: MULTIPLE SCLEROSIS
     Route: 048
     Dates: start: 20160212
  7. AMOXICILLIN. [Concomitant]
     Active Substance: AMOXICILLIN
  8. RISPERIDONE. [Concomitant]
     Active Substance: RISPERIDONE
  9. LEVETIRACETAM. [Concomitant]
     Active Substance: LEVETIRACETAM
  10. NITROFURANTOIN. [Concomitant]
     Active Substance: NITROFURANTOIN
  11. METHYLPREDNISOLONE. [Concomitant]
     Active Substance: METHYLPREDNISOLONE
  12. CLONAZEPAM. [Concomitant]
     Active Substance: CLONAZEPAM
  13. OXYCODONE [Concomitant]
     Active Substance: OXYCODONE
  14. MYRBETRIQ [Concomitant]
     Active Substance: MIRABEGRON

REACTIONS (4)
  - Asthenia [Unknown]
  - Multiple sclerosis relapse [Unknown]
  - Depression [Unknown]
  - Hypoaesthesia [Unknown]

NARRATIVE: CASE EVENT DATE: 201607
